FAERS Safety Report 18132292 (Version 2)
Quarter: 2020Q3

REPORT INFORMATION
  Report Type: Report from Study
  Country: None (occurrence: US)
  Receive Date: 20200811
  Receipt Date: 20200921
  Transmission Date: 20201103
  Serious: Yes (Hospitalization, Other)
  Sender: FDA-Public Use
  Company Number: US-ABBVIE-20K-163-3514038-00

PATIENT
  Age: 63 Year
  Sex: Female
  Weight: 139.38 kg

DRUGS (3)
  1. HUMIRA [Suspect]
     Active Substance: ADALIMUMAB
     Route: 058
     Dates: start: 2020
  2. HUMIRA [Suspect]
     Active Substance: ADALIMUMAB
     Indication: HIDRADENITIS
     Route: 058
     Dates: start: 2019, end: 20190818
  3. HUMIRA [Suspect]
     Active Substance: ADALIMUMAB
     Route: 058
     Dates: start: 20190901, end: 20200105

REACTIONS (11)
  - Furuncle [Unknown]
  - Cardiac arrest [Recovered/Resolved]
  - Hidradenitis [Recovered/Resolved with Sequelae]
  - Breast abscess [Recovered/Resolved]
  - Abscess limb [Recovered/Resolved]
  - Haemoglobin decreased [Unknown]
  - Drug ineffective [Not Recovered/Not Resolved]
  - Retracted nipple [Unknown]
  - Hidradenitis [Not Recovered/Not Resolved]
  - Dyspnoea [Recovering/Resolving]
  - Breast cyst [Recovered/Resolved]

NARRATIVE: CASE EVENT DATE: 201908
